FAERS Safety Report 10162185 (Version 1)
Quarter: 2014Q2

REPORT INFORMATION
  Report Type: Spontaneous
  Country: US (occurrence: US)
  Receive Date: 20140509
  Receipt Date: 20140509
  Transmission Date: 20141212
  Serious: No
  Sender: FDA-Public Use
  Company Number: US-009507513-1405USA004574

PATIENT
  Sex: 0
  Weight: 76.64 kg

DRUGS (2)
  1. NEXPLANON [Suspect]
     Dosage: FREQ: 1 ROD/THREE YEARS
     Route: 059
     Dates: start: 201310, end: 20140505
  2. NEXPLANON [Suspect]
     Dosage: UNK
     Route: 059
     Dates: start: 20140505

REACTIONS (3)
  - Device breakage [Recovered/Resolved]
  - Product quality issue [Unknown]
  - No adverse event [Unknown]
